FAERS Safety Report 8251099-6 (Version None)
Quarter: 2012Q2

REPORT INFORMATION
  Report Type: 
  Country: None (occurrence: None)
  Receive Date: 20120402
  Receipt Date: 20120327
  Transmission Date: 20120825
  Serious: Yes (Other)
  Sender: FDA-Public Use
  Company Number: US-PFIZER INC-2012063726

PATIENT
  Sex: Male
  Weight: 95.238 kg

DRUGS (4)
  1. VIAGRA [Suspect]
     Indication: ERECTILE DYSFUNCTION
     Dosage: UNK
     Route: 048
     Dates: start: 20010402
  2. VIAGRA [Suspect]
     Dosage: 100 MG, 1X/DAY
     Route: 048
  3. INSULIN [Concomitant]
     Indication: DIABETES MELLITUS
     Dosage: 50 MG, 2X/DAY
  4. VIAGRA [Suspect]
     Dosage: 125 MG, ALTERNATE DAY
     Route: 048
     Dates: start: 20040330

REACTIONS (4)
  - ACQUIRED IMMUNODEFICIENCY SYNDROME [None]
  - ERYTHEMA [None]
  - TESTICULAR SWELLING [None]
  - TESTICULAR DISORDER [None]
